FAERS Safety Report 12234676 (Version 1)
Quarter: 2016Q2

REPORT INFORMATION
  Report Type: Spontaneous
  Country: US (occurrence: None)
  Receive Date: 20160401
  Receipt Date: 20160401
  Transmission Date: 20160815
  Serious: Yes (Hospitalization)
  Sender: FDA-Public Use
  Company Number: None

PATIENT
  Age: 71 Year
  Sex: Male
  Weight: 57 kg

DRUGS (2)
  1. DABIGATRAN [Suspect]
     Active Substance: DABIGATRAN
     Dosage: MG BID PO
     Route: 048
     Dates: start: 20160114, end: 20160212
  2. ENOXAPARIN (GENERIC) [Suspect]
     Active Substance: ENOXAPARIN
     Route: 058
     Dates: start: 20160211, end: 20160212

REACTIONS (4)
  - Therapy cessation [None]
  - Haemoglobin decreased [None]
  - Blood urine present [None]
  - Oedema peripheral [None]

NARRATIVE: CASE EVENT DATE: 20160210
